FAERS Safety Report 18369237 (Version 2)
Quarter: 2021Q1

REPORT INFORMATION
  Report Type: Report from Study
  Country: None (occurrence: DE)
  Receive Date: 20201011
  Receipt Date: 20210209
  Transmission Date: 20210419
  Serious: Yes (Hospitalization)
  Sender: FDA-Public Use
  Company Number: DE-ABBVIE-20K-062-3603339-00

PATIENT
  Age: 57 Year
  Sex: Female

DRUGS (6)
  1. OLUMIANT [Concomitant]
     Active Substance: BARICITINIB
     Indication: PRODUCT USED FOR UNKNOWN INDICATION
     Dates: start: 201803, end: 202005
  2. METHOTREXATE. [Concomitant]
     Active Substance: METHOTREXATE
     Dosage: START DATE BETWEEN 27 SEP 2012?18 MAR 2013?STOP DATE BETWEEN 09 MAR 2018?17 OCT 2018
     Dates: start: 20120927, end: 20180309
  3. METHOTREXATE. [Concomitant]
     Active Substance: METHOTREXATE
     Dosage: START DATE BETWEEN 09 MAR 2018?17 OCT 2018?STOP DATE BETWEEN 19 FEB 2019?22 OCT 2019
     Dates: start: 20180309, end: 20191022
  4. RINVOQ [Suspect]
     Active Substance: UPADACITINIB
     Indication: RHEUMATOID ARTHRITIS
     Route: 048
     Dates: start: 202005
  5. METHOTREXATE. [Concomitant]
     Active Substance: METHOTREXATE
     Indication: PRODUCT USED FOR UNKNOWN INDICATION
     Dosage: START DATE BEFORE ? 22 MAR 2012?STOP DATE BETWEEN? 27 SEP 2012?18 MAR 2013
     Dates: start: 201203, end: 20120927
  6. METHOTREXATE. [Concomitant]
     Active Substance: METHOTREXATE
     Dosage: START DATE BETWEEN 19 FEB 2019?22 OCT 2019
     Dates: start: 20190219

REACTIONS (2)
  - Rheumatoid nodule [Recovered/Resolved]
  - Hypercholesterolaemia [Unknown]

NARRATIVE: CASE EVENT DATE: 20200831
